FAERS Safety Report 22335706 (Version 1)
Quarter: 2023Q2

REPORT INFORMATION
  Report Type: Spontaneous
  Country: AU (occurrence: AU)
  Receive Date: 20230518
  Receipt Date: 20230518
  Transmission Date: 20230721
  Serious: Yes (Hospitalization, Other)
  Sender: FDA-Public Use
  Company Number: AU-CELGENE-AUS-20210807829

PATIENT
  Age: 55 Year
  Sex: Female
  Weight: 53 kg

DRUGS (21)
  1. AZACITIDINE [Suspect]
     Active Substance: AZACITIDINE
     Indication: Acute myeloid leukaemia
     Dosage: 115 MILLIGRAM
     Route: 042
     Dates: start: 20210713, end: 20210721
  2. BGB-11417 [Suspect]
     Active Substance: BGB-11417
     Indication: Acute myeloid leukaemia
     Dosage: 10 MILLIGRAM
     Route: 048
     Dates: start: 20210714
  3. BGB-11417 [Suspect]
     Active Substance: BGB-11417
     Dosage: 80 MILLIGRAM
     Route: 048
     Dates: start: 20210717, end: 20210723
  4. FILGRASTIM [Concomitant]
     Active Substance: FILGRASTIM
     Indication: Neutropenia
     Dosage: FREQUENCY TEXT: NOT PROVIDED
     Dates: start: 20210809, end: 20210816
  5. MAGNESIUM [Concomitant]
     Active Substance: MAGNESIUM
     Indication: Hypomagnesaemia
     Dosage: FREQUENCY TEXT: NOT PROVIDED
     Dates: start: 20210713, end: 20210713
  6. MAGNESIUM [Concomitant]
     Active Substance: MAGNESIUM
     Dosage: FREQUENCY TEXT: NOT PROVIDED
     Dates: start: 20210721
  7. MAGNESIUM [Concomitant]
     Active Substance: MAGNESIUM
     Dosage: FREQUENCY TEXT: NOT PROVIDED
     Dates: start: 20210730, end: 20210730
  8. MAGNESIUM [Concomitant]
     Active Substance: MAGNESIUM
     Dosage: FREQUENCY TEXT: NOT PROVIDED
     Dates: start: 20210803, end: 20210803
  9. MAGNESIUM [Concomitant]
     Active Substance: MAGNESIUM
     Dosage: FREQUENCY TEXT: NOT PROVIDED
     Dates: start: 20210808, end: 20210808
  10. METOCLOPRAMIDE [Concomitant]
     Active Substance: METOCLOPRAMIDE
     Indication: Nausea
     Dosage: FREQUENCY TEXT: NOT PROVIDED
     Dates: start: 20210706, end: 20210713
  11. METHOXYFLURANE [Concomitant]
     Active Substance: METHOXYFLURANE
     Indication: Sedation
     Dosage: FREQUENCY TEXT: NOT PROVIDED
     Dates: start: 20210803, end: 20210803
  12. LIDOCAINE [Concomitant]
     Active Substance: LIDOCAINE
     Indication: Product used for unknown indication
     Dosage: FREQUENCY TEXT: NOT PROVIDED
     Dates: start: 20210803, end: 20210803
  13. POTASSIUM [Concomitant]
     Active Substance: POTASSIUM
     Indication: Product used for unknown indication
     Dosage: FREQUENCY TEXT: NOT PROVIDED
     Dates: start: 20210715, end: 20210718
  14. POTASSIUM [Concomitant]
     Active Substance: POTASSIUM
     Dosage: FREQUENCY TEXT: NOT PROVIDED
     Dates: start: 20210719, end: 20210719
  15. POTASSIUM [Concomitant]
     Active Substance: POTASSIUM
     Dosage: FREQUENCY TEXT: NOT PROVIDED
     Dates: start: 20210809, end: 20210809
  16. ALLOPURINOL [Concomitant]
     Active Substance: ALLOPURINOL
     Indication: Tumour lysis syndrome
     Dosage: FREQUENCY TEXT: NOT PROVIDED
     Dates: start: 20210711, end: 20210809
  17. SODIUM CHLORIDE [Concomitant]
     Active Substance: SODIUM CHLORIDE
     Indication: Product used for unknown indication
     Dosage: FREQUENCY TEXT: NOT PROVIDED
     Dates: start: 20210714, end: 20210718
  18. AMOXYCILLIN [AMOXICILLIN TRIHYDRATE] [Concomitant]
     Indication: Prophylaxis
     Dates: start: 20210625, end: 20210809
  19. ONDANSETRON [Concomitant]
     Active Substance: ONDANSETRON
     Indication: Nausea
     Dates: start: 20210713
  20. SPAN K [Concomitant]
     Indication: Hypokalaemia
     Dates: start: 20210721
  21. SODIUM CHLORIDE [Concomitant]
     Active Substance: SODIUM CHLORIDE
     Indication: Tumour lysis syndrome
     Dates: start: 20210714, end: 20210718

REACTIONS (1)
  - Infected fistula [Recovered/Resolved]

NARRATIVE: CASE EVENT DATE: 20210809
